FAERS Safety Report 17454591 (Version 1)
Quarter: 2020Q1

REPORT INFORMATION
  Report Type: Spontaneous
  Country: US (occurrence: US)
  Receive Date: 20200211
  Receipt Date: 20200211
  Transmission Date: 20200409
  Serious: No
  Sender: FDA-Public Use
  Company Number: None

PATIENT
  Age: 60 Year
  Sex: Female

DRUGS (15)
  1. ASPIRIN. [Concomitant]
     Active Substance: ASPIRIN
  2. TRULICITY [Suspect]
     Active Substance: DULAGLUTIDE
     Indication: LIPID METABOLISM DISORDER
     Dosage: ?          OTHER DOSE:1.5/0.5 ML;?
     Route: 058
     Dates: start: 20190822
  3. VASCEPA [Concomitant]
     Active Substance: ICOSAPENT ETHYL
  4. AMLODIPINE [Concomitant]
     Active Substance: AMLODIPINE BESYLATE
  5. BENICAR [Concomitant]
     Active Substance: OLMESARTAN MEDOXOMIL
  6. TORSEMIDE. [Concomitant]
     Active Substance: TORSEMIDE
  7. ZOLOFT [Concomitant]
     Active Substance: SERTRALINE HYDROCHLORIDE
  8. CLOACE [Concomitant]
  9. SYNAJARDY [Concomitant]
  10. IRON [Concomitant]
     Active Substance: IRON
  11. METOPROLOL TARTRATE. [Concomitant]
     Active Substance: METOPROLOL TARTRATE
  12. MULTIVIT [Concomitant]
     Active Substance: VITAMINS
  13. PROTONIX [Concomitant]
     Active Substance: PANTOPRAZOLE SODIUM
  14. VITAMIN D3 [Concomitant]
     Active Substance: CHOLECALCIFEROL
  15. GABAPENTIN. [Concomitant]
     Active Substance: GABAPENTIN

REACTIONS (1)
  - Cardiac failure congestive [None]

NARRATIVE: CASE EVENT DATE: 20200210
